FAERS Safety Report 5054031-1 (Version None)
Quarter: 2006Q2

REPORT INFORMATION
  Report Type: 
  Country: None (occurrence: None)
  Receive Date: 20060616
  Receipt Date: 20050803
  Transmission Date: 20061013
  Serious: Yes (Hospitalization)
  Sender: FDA-Public Use
  Company Number: 200516040US

PATIENT
  Age: 49 Year
  Sex: Female

DRUGS (6)
  1. LANTUS [Suspect]
     Indication: DIABETES MELLITUS NON-INSULIN-DEPENDENT
     Dosage: 40 U HS INJ
     Dates: start: 20040101
  2. CPTICLIK [Suspect]
     Dates: start: 20050101
  3. METFORMIN HYDROCHLORIDE [Concomitant]
  4. GLYBURIDE [Concomitant]
  5. COZAAR [Suspect]
  6. PROZAC [Concomitant]

REACTIONS (1)
  - HYPERGLYCAEMIA [None]
